FAERS Safety Report 19899802 (Version 1)
Quarter: 2021Q3

REPORT INFORMATION
  Report Type: Spontaneous
  Country: FR (occurrence: FR)
  Receive Date: 20210930
  Receipt Date: 20210930
  Transmission Date: 20211014
  Serious: Yes (Hospitalization, Other)
  Sender: FDA-Public Use
  Company Number: FR-GLAXOSMITHKLINE-FR2016018362

PATIENT
  Age: 29 Year
  Sex: Male
  Weight: 61 kg

DRUGS (8)
  1. VERATRAN [Suspect]
     Active Substance: CLOTIAZEPAM
     Indication: ANXIETY
     Dosage: 30 MG, SINGLE
     Route: 048
     Dates: start: 20160110, end: 20160110
  2. CABOTEGRAVIR [Suspect]
     Active Substance: CABOTEGRAVIR
     Dosage: 600 MG, CYC (MAINTENANCE PERIOD)
     Route: 030
     Dates: start: 20150106
  3. TMC?278 [Suspect]
     Active Substance: RILPIVIRINE
     Indication: HIV INFECTION
     Dosage: 900 MG, SINGLE (MAINTENANCE PERIOD)
     Route: 030
     Dates: start: 20141209, end: 20141209
  4. TMC?278 [Suspect]
     Active Substance: RILPIVIRINE
     Dosage: 900 MG, CYC (MAINTENANCE PERIOD)
     Route: 030
     Dates: start: 20150203
  5. CABOTEGRAVIR [Suspect]
     Active Substance: CABOTEGRAVIR
     Indication: HIV INFECTION
     Dosage: 30 MG, 1D (INDUCTION PERIOD)
     Route: 048
     Dates: start: 20140722, end: 20141208
  6. RILPIVIRINE [Suspect]
     Active Substance: RILPIVIRINE
     Indication: HIV INFECTION
     Dosage: 25 MG, 1D (INDUCTION PERIOD)
     Route: 048
     Dates: start: 20141112, end: 20141208
  7. IBUPROFEN. [Suspect]
     Active Substance: IBUPROFEN
     Indication: TORTICOLLIS
     Dosage: 1200 MG, SINGLE
     Route: 048
     Dates: start: 20160110, end: 20160110
  8. CABOTEGRAVIR [Suspect]
     Active Substance: CABOTEGRAVIR
     Indication: HIV INFECTION
     Dosage: 800 MG, SINGLE (MAINTENANCE PERIOD)
     Route: 030
     Dates: start: 20141209, end: 20141209

REACTIONS (1)
  - Suicide attempt [Recovered/Resolved]

NARRATIVE: CASE EVENT DATE: 20160110
